FAERS Safety Report 20554200 (Version 4)
Quarter: 2022Q1

REPORT INFORMATION
  Report Type: Spontaneous
  Country: IT (occurrence: IT)
  Receive Date: 20220304
  Receipt Date: 20220323
  Transmission Date: 20220423
  Serious: Yes (Other)
  Sender: FDA-Public Use
  Company Number: IT-NOVARTISPH-NVSC2022IT050760

PATIENT
  Age: 61 Year
  Sex: Male

DRUGS (12)
  1. RASAGILINE [Suspect]
     Active Substance: RASAGILINE
     Indication: Parkinson^s disease
     Dosage: 1 MG, QD
     Route: 048
  2. TRAZODONE [Concomitant]
     Active Substance: TRAZODONE HYDROCHLORIDE
     Indication: Product used for unknown indication
     Dosage: UNK
     Route: 065
  3. CARBIDOPA AND LEVODOPA [Concomitant]
     Active Substance: CARBIDOPA\LEVODOPA
     Indication: Parkinson^s disease
     Dosage: 500 MG (100/25MG 5 IN 1 D)
     Route: 065
  4. CARBIDOPA AND LEVODOPA [Concomitant]
     Active Substance: CARBIDOPA\LEVODOPA
     Dosage: 900 MG (100/25MG 9 IN 1 D)
     Route: 065
  5. CARBIDOPA AND LEVODOPA [Concomitant]
     Active Substance: CARBIDOPA\LEVODOPA
     Dosage: 300MG  100/25MG 3 IN 1 D)
     Route: 065
  6. CLONAZEPAM [Concomitant]
     Active Substance: CLONAZEPAM
     Indication: Product used for unknown indication
     Dosage: UNK
     Route: 065
  7. PRAMIPEXOLE [Concomitant]
     Active Substance: PRAMIPEXOLE
     Indication: Parkinson^s disease
     Dosage: UNK
     Route: 048
  8. CARBIDOPA [Concomitant]
     Active Substance: CARBIDOPA
     Indication: Parkinson^s disease
     Dosage: 1 DOSAGE FORM, QD
     Route: 065
  9. CARBIDOPA [Concomitant]
     Active Substance: CARBIDOPA
     Dosage: 100/25 MG NINE TIMES PER DAY
     Route: 065
  10. CARBIDOPA [Concomitant]
     Active Substance: CARBIDOPA
     Dosage: 100/25 MG FIVE TIMES PER DAY
     Route: 065
  11. CARBIDOPA [Concomitant]
     Active Substance: CARBIDOPA
     Dosage: 100/25 MG THREE TIMES PER DAY
     Route: 065
  12. MELEVODOPA [Concomitant]
     Active Substance: MELEVODOPA
     Indication: Parkinson^s disease
     Dosage: TWO TIMES PER DAY
     Route: 065

REACTIONS (12)
  - Drug withdrawal syndrome [Recovered/Resolved]
  - Dysphoria [Recovered/Resolved]
  - Fatigue [Recovered/Resolved]
  - Pain [Recovered/Resolved]
  - Aggression [Recovered/Resolved]
  - Anxiety [Recovered/Resolved]
  - Muscle rigidity [Recovered/Resolved]
  - Depression [Recovered/Resolved]
  - Agitation [Recovered/Resolved]
  - Insomnia [Recovered/Resolved]
  - On and off phenomenon [Recovering/Resolving]
  - Rapid eye movement sleep behaviour disorder [Recovered/Resolved]
